FAERS Safety Report 6961738-5 (Version None)
Quarter: 2010Q3

REPORT INFORMATION
  Report Type: 
  Country: None (occurrence: None)
  Receive Date: 20100901
  Receipt Date: 20100729
  Transmission Date: 20110219
  Serious: No
  Sender: FDA-Public Use
  Company Number: US-AMGEN-KDL428009

PATIENT
  Sex: Female

DRUGS (2)
  1. PROLIA [Suspect]
     Indication: OSTEOPOROSIS POSTMENOPAUSAL
     Route: 058
     Dates: start: 20100701
  2. SYNTHROID [Concomitant]

REACTIONS (3)
  - DERMATITIS CONTACT [None]
  - POLLAKIURIA [None]
  - RASH GENERALISED [None]
